FAERS Safety Report 21421290 (Version 2)
Quarter: 2023Q1

REPORT INFORMATION
  Report Type: Spontaneous
  Country: JP (occurrence: JP)
  Receive Date: 20221007
  Receipt Date: 20230104
  Transmission Date: 20230418
  Serious: Yes (Other)
  Sender: FDA-Public Use
  Company Number: JP-ASTPRDJPN-AER-2022-002751

PATIENT
  Age: 27 Year
  Sex: Female
  Weight: 52.2 kg

DRUGS (17)
  1. PROGRAF [Suspect]
     Active Substance: TACROLIMUS
     Indication: Immune-mediated myositis
     Route: 048
     Dates: start: 20210720
  2. PROGRAF [Suspect]
     Active Substance: TACROLIMUS
     Route: 048
     Dates: start: 20210728
  3. SOLU-MEDROL [Suspect]
     Active Substance: METHYLPREDNISOLONE SODIUM SUCCINATE
     Indication: Immune-mediated myositis
     Route: 042
     Dates: start: 20210625, end: 20210710
  4. PREDONINE [Suspect]
     Active Substance: PREDNISOLONE
     Indication: Immune-mediated myositis
     Route: 048
     Dates: start: 20210713, end: 20210719
  5. PREDONINE [Suspect]
     Active Substance: PREDNISOLONE
     Route: 048
     Dates: start: 20210720, end: 20210726
  6. PREDONINE [Suspect]
     Active Substance: PREDNISOLONE
     Route: 048
     Dates: start: 20210727, end: 20220802
  7. PREDONINE [Suspect]
     Active Substance: PREDNISOLONE
     Route: 048
     Dates: start: 20210803, end: 20210810
  8. PREDONINE [Suspect]
     Active Substance: PREDNISOLONE
     Route: 048
     Dates: start: 20210811, end: 20210816
  9. PREDONINE [Suspect]
     Active Substance: PREDNISOLONE
     Route: 048
     Dates: start: 20210817, end: 20210902
  10. PREDONINE [Suspect]
     Active Substance: PREDNISOLONE
     Route: 048
     Dates: start: 20210903, end: 20210916
  11. PREDONINE [Suspect]
     Active Substance: PREDNISOLONE
     Route: 048
     Dates: start: 20210917, end: 20210930
  12. PREDONINE [Suspect]
     Active Substance: PREDNISOLONE
     Route: 048
     Dates: start: 20211001, end: 20211021
  13. PREDONINE [Suspect]
     Active Substance: PREDNISOLONE
     Route: 048
     Dates: start: 20211022
  14. CALCIUM L-ASPARTATE [Concomitant]
     Indication: Osteoporosis prophylaxis
     Route: 048
     Dates: start: 20210628
  15. ASPIRIN [Concomitant]
     Active Substance: ASPIRIN
     Indication: Prophylaxis
     Route: 048
     Dates: start: 20210628, end: 20211031
  16. IOPAMIDOL [Concomitant]
     Active Substance: IOPAMIDOL
     Indication: Product used for unknown indication
     Dosage: UNK UNK, UNKNOWN FREQ.
     Route: 065
  17. FAMOTIDINE [Concomitant]
     Active Substance: FAMOTIDINE
     Indication: Prophylaxis against gastrointestinal ulcer
     Route: 048
     Dates: start: 20210713

REACTIONS (2)
  - Gestational diabetes [Recovered/Resolved]
  - Off label use [Unknown]

NARRATIVE: CASE EVENT DATE: 20210720
